FAERS Safety Report 4849247-0 (Version None)
Quarter: 2005Q4

REPORT INFORMATION
  Report Type: 
  Country: None (occurrence: None)
  Receive Date: 20051207
  Receipt Date: 20050207
  Transmission Date: 20060501
  Serious: Yes (Hospitalization)
  Sender: FDA-Public Use
  Company Number: 2005BI002747

PATIENT
  Age: 39 Year
  Sex: Female
  Weight: 104.3273 kg

DRUGS (3)
  1. AVONEX [Suspect]
     Indication: MULTIPLE SCLEROSIS
     Dosage: 30 UG;QW;IM
     Route: 030
     Dates: start: 20030101, end: 20030801
  2. AVONEX [Suspect]
     Indication: MULTIPLE SCLEROSIS
     Dosage: 30 UG;QW;IM
     Route: 030
     Dates: start: 20030801
  3. CRYSTALLINE VIT B12 INJ [Concomitant]

REACTIONS (9)
  - FATIGUE [None]
  - GASTRIC BYPASS [None]
  - HYPERTHYROIDISM [None]
  - INJECTION SITE BRUISING [None]
  - INJECTION SITE HAEMORRHAGE [None]
  - INJECTION SITE PAIN [None]
  - INJECTION SITE REACTION [None]
  - OBESITY [None]
  - SKIN LACERATION [None]
